FAERS Safety Report 9869427 (Version 1)
Quarter: 2014Q1

REPORT INFORMATION
  Report Type: Report from Study
  Country: JP (occurrence: JP)
  Receive Date: 20140205
  Receipt Date: 20140205
  Transmission Date: 20141002
  Serious: Yes (Death, Congenital Anomaly)
  Sender: FDA-Public Use
  Company Number: JP-009507513-1402JPN000987

PATIENT
  Sex: 0

DRUGS (7)
  1. GANIRELIX ACETATE [Suspect]
     Indication: PREVENTION OF PREMATURE OVULATION
     Dosage: 0.25 MG, QD; IT IS PATIENT^S MOTHER THAT THE GANIRERICS ACETATE WAS ADMINISTERED
     Route: 064
     Dates: start: 20111202, end: 20111204
  2. FOLLISTIM [Suspect]
     Indication: IN VITRO FERTILISATION
     Dosage: 225 (UNDER 1000 UNIT); IT IS PATIENT^S MOTHER THAT THE FOLLITROPIN WAS ADMINISTERED
     Route: 064
     Dates: start: 20111127, end: 20111127
  3. FOLLISTIM [Suspect]
     Dosage: 150, UNDER 1000UNIT; QD,IT IS PATIENT^S MOTHER THAT THE FOLLITROPIN WAS ADMINISTERED.
     Route: 064
     Dates: start: 20111128, end: 20111128
  4. GONADOTROPIN, CHORIONIC [Concomitant]
     Indication: OVULATION INDUCTION
     Dosage: 5 THOUSAND-MILLION UNIT, QD,IT^S PATIENT^S MOTHER THAT HUMAN CHORIONIC GONADOTROPIN WAS ADMINISTERED
     Route: 064
     Dates: start: 20111205, end: 20111205
  5. MENOTROPINS [Concomitant]
     Indication: IN VITRO FERTILISATION
     Dosage: 150, UNDER 1000UNIT, QD
     Route: 064
     Dates: start: 20111202, end: 20111205
  6. LUTORAL (CHLORMADINONE ACETATE) [Concomitant]
     Indication: IN VITRO FERTILISATION
     Dosage: 12 MG, 1 DAY,DIVIDED DOSE FREQUENCY UNKNOWN,IT IS PATIENT^S MOTHER THAT THE CHLORMADINONE WAS ADMINI
     Route: 064
     Dates: start: 20111212, end: 20111224
  7. PROGESTONE DEPOT [Concomitant]
     Indication: IN VITRO FERTILISATION
     Dosage: 125 MG, QD,IT IS PATIENT^S MOTHER THAT THE HYDROXYPROGEATERONE CAPROIC ACID WAS ADMINISTERED.
     Route: 064
     Dates: start: 20111212, end: 20111212

REACTIONS (2)
  - Trisomy 13 [Fatal]
  - Foetal exposure during pregnancy [Unknown]
